FAERS Safety Report 7300293-7 (Version None)
Quarter: 2011Q1

REPORT INFORMATION
  Report Type: 
  Country: None (occurrence: None)
  Receive Date: 20110217
  Receipt Date: 20110203
  Transmission Date: 20110831
  Serious: No
  Sender: FDA-Public Use
  Company Number: US-BIOGENIDEC-2011BI005130

PATIENT
  Age: 48 Year
  Sex: Female

DRUGS (3)
  1. TYSABRI [Suspect]
     Indication: MULTIPLE SCLEROSIS
     Route: 042
     Dates: start: 20110119
  2. TYSABRI [Suspect]
     Route: 042
     Dates: start: 20061030, end: 20061229
  3. TYSABRI [Suspect]
     Route: 042
     Dates: start: 20090306, end: 20100312

REACTIONS (6)
  - EYE MOVEMENT DISORDER [None]
  - EYELID PTOSIS [None]
  - GAIT DISTURBANCE [None]
  - VISION BLURRED [None]
  - HYPERSOMNIA [None]
  - STRESS [None]
